FAERS Safety Report 9669694 (Version 1)
Quarter: 2013Q4

REPORT INFORMATION
  Report Type: Spontaneous
  Country: US (occurrence: None)
  Receive Date: 20131104
  Receipt Date: 20131104
  Transmission Date: 20140711
  Serious: Yes (Other)
  Sender: FDA-Public Use
  Company Number: None

PATIENT
  Age: 24 Year
  Sex: Male
  Weight: 107 kg

DRUGS (1)
  1. AMOXICILLIN/CLAVULANIC ACID [Suspect]
     Indication: TOOTH ABSCESS
     Dosage: 1 PILL, TID, ORAL
     Route: 048
     Dates: start: 20131014, end: 20131024

REACTIONS (1)
  - Diarrhoea [None]
